FAERS Safety Report 20930206 (Version 1)
Quarter: 2022Q2

REPORT INFORMATION
  Report Type: Other
  Country: JP (occurrence: JP)
  Receive Date: 20220608
  Receipt Date: 20220608
  Transmission Date: 20220721
  Serious: Yes (Death, Other)
  Sender: FDA-Public Use
  Company Number: JP-CHUGAI-A2019033319ROCHE

PATIENT
  Age: 77 Year
  Sex: Male
  Weight: 72 kg

DRUGS (9)
  1. OBINUTUZUMAB [Suspect]
     Active Substance: OBINUTUZUMAB
     Indication: Follicular lymphoma
     Dosage: DOSAGE IS UNCERTAIN.
     Route: 041
     Dates: start: 20190508, end: 20190508
  2. OBINUTUZUMAB [Suspect]
     Active Substance: OBINUTUZUMAB
     Dosage: 1000MG,ONCE IN1DAY
     Route: 041
     Dates: start: 20190515, end: 20190515
  3. OBINUTUZUMAB [Suspect]
     Active Substance: OBINUTUZUMAB
     Dosage: 1000MG,ONCE IN1DAY
     Route: 041
     Dates: start: 20190522, end: 20190522
  4. OBINUTUZUMAB [Suspect]
     Active Substance: OBINUTUZUMAB
     Dosage: 1000MG,ONCE IN1DAY
     Route: 041
     Dates: start: 20190605, end: 20190605
  5. OBINUTUZUMAB [Suspect]
     Active Substance: OBINUTUZUMAB
     Dosage: 1000MG,ONCE IN1DAY
     Route: 041
     Dates: start: 20190703, end: 20190703
  6. OBINUTUZUMAB [Suspect]
     Active Substance: OBINUTUZUMAB
     Dosage: 1000MG,ONCE IN1DAY
     Route: 041
     Dates: start: 20190911, end: 20190911
  7. OBINUTUZUMAB [Suspect]
     Active Substance: OBINUTUZUMAB
     Dosage: 1000MG,ONCE IN1DAY?MOST RECENT DOSE: 09/OCT/2019
     Route: 041
     Dates: start: 20191009
  8. OBINUTUZUMAB [Suspect]
     Active Substance: OBINUTUZUMAB
     Dosage: 1000MG,ONCE IN1DAY
     Route: 041
     Dates: start: 20190731, end: 20190731
  9. BENDAMUSTINE HYDROCHLORIDE [Suspect]
     Active Substance: BENDAMUSTINE HYDROCHLORIDE
     Indication: Follicular lymphoma
     Dosage: DOSAGE IS UNCERTAIN.?MOST RECENT WAS ADMINISTERED ON 11/OCT/2019
     Route: 041
     Dates: start: 20190510

REACTIONS (4)
  - Death [Fatal]
  - Myelosuppression [Unknown]
  - Nasopharyngitis [Unknown]
  - Drug ineffective [Unknown]

NARRATIVE: CASE EVENT DATE: 20191224
